FAERS Safety Report 9664965 (Version 2)
Quarter: 2013Q4

REPORT INFORMATION
  Report Type: Report from Study
  Country: US (occurrence: US)
  Receive Date: 20131101
  Receipt Date: 20131101
  Transmission Date: 20140711
  Serious: Yes (Other)
  Sender: FDA-Public Use
  Company Number: US-ABBVIE-13P-163-1143116-00

PATIENT
  Age: 51 Year
  Sex: Male
  Weight: 69.46 kg

DRUGS (5)
  1. HUMIRA [Suspect]
     Indication: ANKYLOSING SPONDYLITIS
     Dates: start: 2010, end: 2012
  2. HUMIRA [Suspect]
     Dates: start: 201308, end: 201308
  3. WELLBUTRIN [Concomitant]
     Indication: PRODUCT USED FOR UNKNOWN INDICATION
  4. MELOXICAM [Concomitant]
     Indication: PRODUCT USED FOR UNKNOWN INDICATION
  5. ADVIL [Concomitant]
     Indication: PRODUCT USED FOR UNKNOWN INDICATION

REACTIONS (6)
  - Pulmonary mass [Recovered/Resolved]
  - Ankylosing spondylitis [Recovered/Resolved]
  - Chest pain [Not Recovered/Not Resolved]
  - Lung infection [Recovered/Resolved]
  - Back pain [Recovered/Resolved]
  - Pneumonia [Recovered/Resolved]
